FAERS Safety Report 16001083 (Version 5)
Quarter: 2019Q2

REPORT INFORMATION
  Report Type: Spontaneous
  Country: US (occurrence: US)
  Receive Date: 20190225
  Receipt Date: 20190515
  Transmission Date: 20190711
  Serious: Yes (Other)
  Sender: FDA-Public Use
  Company Number: US-CLOVIS ONCOLOGY-CLO-2019-000299

PATIENT
  Age: 75 Year
  Sex: Female

DRUGS (4)
  1. RUBRACA [Suspect]
     Active Substance: RUCAPARIB CAMSYLATE
     Dosage: 500 MG, BID
     Route: 048
     Dates: start: 20190110
  2. RUBRACA [Suspect]
     Active Substance: RUCAPARIB CAMSYLATE
     Indication: OVARIAN CANCER
     Dosage: 600 MG, BID
     Route: 048
     Dates: start: 20190110, end: 20190214
  3. RUBRACA [Suspect]
     Active Substance: RUCAPARIB CAMSYLATE
     Dosage: 500 MG, BID
     Route: 048
     Dates: start: 20190222, end: 2019
  4. RUBRACA [Suspect]
     Active Substance: RUCAPARIB CAMSYLATE
     Dosage: UNK

REACTIONS (18)
  - Computerised tomogram abnormal [Not Recovered/Not Resolved]
  - Fluid retention [Unknown]
  - Decreased appetite [Not Recovered/Not Resolved]
  - Ovarian cancer recurrent [Unknown]
  - Discomfort [Unknown]
  - Abdominal distension [Unknown]
  - White blood cell count decreased [Recovering/Resolving]
  - Carbohydrate antigen 125 increased [Not Recovered/Not Resolved]
  - Eructation [Not Recovered/Not Resolved]
  - Taste disorder [Not Recovered/Not Resolved]
  - Back pain [Unknown]
  - Drug ineffective [Unknown]
  - Red blood cell count abnormal [Unknown]
  - Constipation [Unknown]
  - Abdominal discomfort [Not Recovered/Not Resolved]
  - Fatigue [Unknown]
  - Product dose omission [Unknown]
  - Red blood cell count decreased [Recovering/Resolving]

NARRATIVE: CASE EVENT DATE: 2019
